FAERS Safety Report 9639910 (Version 1)
Quarter: 2013Q4

REPORT INFORMATION
  Report Type: Spontaneous
  Country: US (occurrence: None)
  Receive Date: 20131021
  Receipt Date: 20131021
  Transmission Date: 20140711
  Serious: Yes (Other)
  Sender: FDA-Public Use
  Company Number: None

PATIENT
  Age: 57 Year
  Sex: Male
  Weight: 103.42 kg

DRUGS (11)
  1. LUCENTIS [Suspect]
     Indication: MACULAR DEGENERATION
     Dates: start: 20130713
  2. METFORMIN [Concomitant]
  3. BROMFENAC [Concomitant]
  4. NOVOLOG LANTUS [Concomitant]
  5. AZOPT [Concomitant]
  6. SIMVASTATIN [Concomitant]
  7. LOSARTAN [Concomitant]
  8. VITAMIN D [Concomitant]
  9. ASPIRIN [Concomitant]
  10. CETRIZINE [Concomitant]
  11. MENS VITAMINS [Concomitant]

REACTIONS (2)
  - Cough [None]
  - Blood glucose increased [None]
